FAERS Safety Report 13840529 (Version 1)
Quarter: 2017Q3

REPORT INFORMATION
  Report Type: Spontaneous
  Country: FI (occurrence: FI)
  Receive Date: 20170807
  Receipt Date: 20170807
  Transmission Date: 20171127
  Serious: Yes (Life-Threatening, Hospitalization)
  Sender: FDA-Public Use
  Company Number: FI-TEVA-792270ISR

PATIENT
  Age: 66 Year
  Sex: Female

DRUGS (10)
  1. PANACOD [Concomitant]
     Active Substance: ACETAMINOPHEN\CODEINE PHOSPHATE
     Indication: PAIN
     Dosage: AS NEEDED
     Route: 048
  2. COZAAR [Concomitant]
     Active Substance: LOSARTAN POTASSIUM
     Indication: BLOOD PRESSURE ABNORMAL
     Dosage: 50 MILLIGRAM DAILY;
     Route: 048
  3. TRIMETIN 100 MG [Concomitant]
     Indication: BLOOD PRESSURE ABNORMAL
     Dosage: 100 MILLIGRAM DAILY;
     Route: 048
  4. ALLONOL 300 MG [Suspect]
     Active Substance: ALLOPURINOL
     Indication: GOUT
     Dosage: 300 MILLIGRAM DAILY;
     Route: 048
     Dates: start: 20170608, end: 20170628
  5. FURESIS 20 MG [Concomitant]
     Active Substance: FUROSEMIDE
     Indication: DIURETIC THERAPY
     Dosage: 40 MILLIGRAM DAILY;
     Route: 048
  6. EMCONCOR 5 MG [Concomitant]
     Indication: BLOOD PRESSURE ABNORMAL
     Dosage: 5 MILLIGRAM DAILY;
     Route: 048
  7. DIURAMIN MITE [Concomitant]
     Active Substance: AMILORIDE HYDROCHLORIDE\HYDROCHLOROTHIAZIDE
     Indication: BLOOD PRESSURE ABNORMAL
     Dosage: 1 DOSAGE FORMS DAILY;
     Route: 048
  8. PANADOL FORTE 1 G [Concomitant]
     Indication: PAIN
     Dosage: AS NEEDED
     Route: 048
  9. HEINIX 10 MG [Concomitant]
     Indication: HYPERSENSITIVITY
     Dosage: 10 MILLIGRAM DAILY; AS NEEDED
     Route: 048
  10. DIFORMIN RETARD 500 MG [Concomitant]
     Indication: DIABETES MELLITUS
     Route: 048

REACTIONS (8)
  - Dizziness [Not Recovered/Not Resolved]
  - Headache [Not Recovered/Not Resolved]
  - Depressed level of consciousness [Not Recovered/Not Resolved]
  - Contrast media allergy [None]
  - Pneumothorax [Not Recovered/Not Resolved]
  - Pyrexia [Not Recovered/Not Resolved]
  - Back pain [Not Recovered/Not Resolved]
  - Intervertebral discitis [None]

NARRATIVE: CASE EVENT DATE: 201706
